FAERS Safety Report 21212820 (Version 1)
Quarter: 2022Q3

REPORT INFORMATION
  Report Type: Spontaneous
  Country: CA (occurrence: CA)
  Receive Date: 20220815
  Receipt Date: 20220815
  Transmission Date: 20221026
  Serious: Yes (Other)
  Sender: FDA-Public Use
  Company Number: None

PATIENT
  Age: 35 Year
  Sex: Female

DRUGS (7)
  1. METHOTREXATE [Suspect]
     Active Substance: METHOTREXATE
     Indication: Product used for unknown indication
     Dosage: 1 EVERY 1 WEEKS
     Route: 058
  2. CLONAZEPAM [Concomitant]
     Active Substance: CLONAZEPAM
     Dosage: EVERY 1 DAYS
     Route: 048
  3. CYMBALTA [Concomitant]
     Active Substance: DULOXETINE HYDROCHLORIDE
     Dosage: EVERY 1 DAYS
  4. FOLIC ACID [Concomitant]
     Active Substance: FOLIC ACID
  5. IRON [Concomitant]
     Active Substance: IRON
  6. VITAMIN D [Concomitant]
     Active Substance: VITAMIN D NOS
  7. METHOTREXATE [Suspect]
     Active Substance: METHOTREXATE
     Indication: Product used for unknown indication
     Dosage: 1 EVERY 1 WEEKS
     Route: 030

REACTIONS (16)
  - Adrenal adenoma [Unknown]
  - Anal incontinence [Unknown]
  - Crohn^s disease [Unknown]
  - Dyspepsia [Unknown]
  - Emphysema [Unknown]
  - Erythema [Unknown]
  - Faeces hard [Unknown]
  - Heavy menstrual bleeding [Unknown]
  - Injection site discomfort [Unknown]
  - Injection site pain [Unknown]
  - Lung cyst [Unknown]
  - Lung opacity [Unknown]
  - Pulmonary mass [Unknown]
  - Rheumatoid arthritis [Unknown]
  - Sexual abuse [Unknown]
  - Splenomegaly [Unknown]
